FAERS Safety Report 22332384 (Version 1)
Quarter: 2023Q2

REPORT INFORMATION
  Report Type: Spontaneous
  Country: CN (occurrence: CN)
  Receive Date: 20230517
  Receipt Date: 20230517
  Transmission Date: 20230722
  Serious: Yes (Hospitalization)
  Sender: FDA-Public Use
  Company Number: CN-BAYER-2023A068533

PATIENT
  Age: 67 Year
  Sex: Male
  Weight: 65 kg

DRUGS (2)
  1. GLUCOBAY [Suspect]
     Active Substance: ACARBOSE
     Indication: Type 2 diabetes mellitus
     Dosage: 50 MG, TID
     Route: 048
     Dates: start: 20230512, end: 20230512
  2. GLUCOBAY [Suspect]
     Active Substance: ACARBOSE
     Indication: Type 2 diabetes mellitus
     Dosage: UNK
     Route: 048
     Dates: start: 202305

REACTIONS (2)
  - Abdominal distension [Recovered/Resolved]
  - Diarrhoea [Recovered/Resolved]

NARRATIVE: CASE EVENT DATE: 20230512
